FAERS Safety Report 14323372 (Version 9)
Quarter: 2018Q4

REPORT INFORMATION
  Report Type: Other
  Country: PL (occurrence: PL)
  Receive Date: 20171226
  Receipt Date: 20181012
  Transmission Date: 20190204
  Serious: Yes (Hospitalization, Other)
  Sender: FDA-Public Use
  Company Number: PL-MERCK KGAA-2037715

PATIENT
  Age: 81 Year
  Sex: Female

DRUGS (19)
  1. FUROSEMIDE. [Suspect]
     Active Substance: FUROSEMIDE
  2. NADROPARIN CALCIUM [Suspect]
     Active Substance: NADROPARIN CALCIUM
  3. VITAMIN D [Concomitant]
     Active Substance: CHOLECALCIFEROL
  4. RIVAROXABAN [Suspect]
     Active Substance: RIVAROXABAN
  5. CIPROFLOXACIN. [Suspect]
     Active Substance: CIPROFLOXACIN
     Route: 042
  6. CARVEDILOL. [Suspect]
     Active Substance: CARVEDILOL
  7. CALCIUM [Concomitant]
     Active Substance: CALCIUM
  8. CIPROFLOXACIN. [Suspect]
     Active Substance: CIPROFLOXACIN
     Route: 042
  9. CIPROFLOXACIN. [Suspect]
     Active Substance: CIPROFLOXACIN
     Route: 042
  10. PREDNISONE. [Suspect]
     Active Substance: PREDNISONE
  11. AMIODARONE [Suspect]
     Active Substance: AMIODARONE
     Dates: start: 201303, end: 2016
  12. CARVEDILOL. [Suspect]
     Active Substance: CARVEDILOL
  13. EUTHYROX [Suspect]
     Active Substance: LEVOTHYROXINE SODIUM
     Indication: PRODUCT USED FOR UNKNOWN INDICATION
  14. PREDNISONE. [Suspect]
     Active Substance: PREDNISONE
  15. PREDNISONE. [Suspect]
     Active Substance: PREDNISONE
  16. HEPARIN SODIUM. [Suspect]
     Active Substance: HEPARIN SODIUM
  17. EUTHYROX [Suspect]
     Active Substance: LEVOTHYROXINE SODIUM
  18. HEPARIN [Suspect]
     Active Substance: HEPARIN SODIUM
  19. PANTOPRAZOLE [Suspect]
     Active Substance: PANTOPRAZOLE

REACTIONS (14)
  - Pulmonary toxicity [Recovered/Resolved]
  - Fatigue [Recovered/Resolved]
  - Cough [Recovered/Resolved]
  - Diarrhoea [Recovering/Resolving]
  - Atrial fibrillation [Unknown]
  - Ventricular arrhythmia [Unknown]
  - Oliguria [Recovering/Resolving]
  - Oedema peripheral [Unknown]
  - Interstitial lung disease [Recovered/Resolved]
  - Dyspnoea exertional [Recovered/Resolved]
  - Exercise tolerance decreased [Recovered/Resolved]
  - Palpitations [Recovered/Resolved]
  - Pneumonia [Recovered/Resolved]
  - Dyspnoea [Recovered/Resolved]

NARRATIVE: CASE EVENT DATE: 2016
